FAERS Safety Report 5815385-9 (Version None)
Quarter: 2008Q3

REPORT INFORMATION
  Report Type: 
  Country: None (occurrence: None)
  Receive Date: 20080718
  Receipt Date: 20080708
  Transmission Date: 20090109
  Serious: Yes (Death)
  Sender: FDA-Public Use
  Company Number: FR-PFIZER INC-2008046271

PATIENT
  Sex: Male
  Weight: 70 kg

DRUGS (1)
  1. SUTENT [Suspect]
     Indication: RENAL CANCER

REACTIONS (6)
  - ABDOMINAL PAIN [None]
  - DEATH [None]
  - GASTROINTESTINAL TOXICITY [None]
  - INTESTINAL PERFORATION [None]
  - PNEUMOPERITONEUM [None]
  - PSOAS ABSCESS [None]
